FAERS Safety Report 13824725 (Version 1)
Quarter: 2017Q3

REPORT INFORMATION
  Report Type: Spontaneous
  Country: GB (occurrence: GB)
  Receive Date: 20170802
  Receipt Date: 20170802
  Transmission Date: 20171127
  Serious: Yes (Life-Threatening, Hospitalization, Disabling, Other)
  Sender: FDA-Public Use
  Company Number: GB-TEVA-790033ACC

PATIENT
  Age: 52 Year
  Sex: Female

DRUGS (2)
  1. CITALOPRAM [Suspect]
     Active Substance: CITALOPRAM HYDROBROMIDE
     Route: 048
     Dates: start: 200706, end: 200712
  2. ESCITALOPRAM [Suspect]
     Active Substance: ESCITALOPRAM OXALATE
     Route: 048
     Dates: start: 2002, end: 2006

REACTIONS (33)
  - Syncope [Recovered/Resolved]
  - Muscle tightness [Unknown]
  - Food intolerance [Unknown]
  - Fatigue [Unknown]
  - Functional gastrointestinal disorder [Unknown]
  - Abnormal dreams [Unknown]
  - Restless legs syndrome [Unknown]
  - Paraesthesia [Unknown]
  - Vitreous floaters [Unknown]
  - Anger [Unknown]
  - Tearfulness [Unknown]
  - Sinus node dysfunction [Unknown]
  - Atrial tachycardia [Unknown]
  - Nausea [Unknown]
  - Saliva altered [Unknown]
  - Coordination abnormal [Unknown]
  - Anaemia [Unknown]
  - Lacrimal disorder [Unknown]
  - Bruxism [Unknown]
  - Hypervigilance [Unknown]
  - Vision blurred [Unknown]
  - Body temperature abnormal [Unknown]
  - Dizziness [Unknown]
  - Panic reaction [Unknown]
  - Bradycardia [Recovered/Resolved]
  - Muscle disorder [Unknown]
  - Visual impairment [Unknown]
  - Mood swings [Unknown]
  - Anxiety [Unknown]
  - Dyskinesia [Unknown]
  - Withdrawal syndrome [Unknown]
  - Sleep disorder [Unknown]
  - Musculoskeletal stiffness [Unknown]

NARRATIVE: CASE EVENT DATE: 2002
